FAERS Safety Report 20965839 (Version 13)
Quarter: 2025Q1

REPORT INFORMATION
  Report Type: Report from Study
  Country: CA (occurrence: CA)
  Receive Date: 20220616
  Receipt Date: 20250304
  Transmission Date: 20250409
  Serious: Yes (Other)
  Sender: ROCHE
  Company Number: CA-ROCHE-3117121

PATIENT
  Age: 59 Year
  Sex: Female

DRUGS (3)
  1. OCREVUS [Suspect]
     Active Substance: OCRELIZUMAB
     Indication: Primary progressive multiple sclerosis
     Dosage: 300 MG AT DAY 0 AND 14 AND THEN 600 MG ON EVERY SIX MONTHS
     Route: 042
     Dates: start: 20220609
  2. PERINDOPRIL [Concomitant]
     Active Substance: PERINDOPRIL
  3. INDAPAMIDE [Concomitant]
     Active Substance: INDAPAMIDE

REACTIONS (8)
  - Fall [Not Recovered/Not Resolved]
  - Upper limb fracture [Unknown]
  - Upper limb fracture [Not Recovered/Not Resolved]
  - Infusion related reaction [Recovered/Resolved]
  - COVID-19 [Recovering/Resolving]
  - Visual impairment [Unknown]
  - Pain in extremity [Unknown]
  - Off label use [Unknown]

NARRATIVE: CASE EVENT DATE: 20220609
